FAERS Safety Report 20852420 (Version 6)
Quarter: 2023Q1

REPORT INFORMATION
  Report Type: Spontaneous
  Country: US (occurrence: US)
  Receive Date: 20220520
  Receipt Date: 20230330
  Transmission Date: 20230418
  Serious: No
  Sender: FDA-Public Use
  Company Number: US-PFIZER INC-202200709553

PATIENT
  Age: 81 Year
  Sex: Female
  Weight: 42.91 kg

DRUGS (1)
  1. PREMARIN [Suspect]
     Active Substance: ESTROGENS, CONJUGATED
     Indication: Urinary incontinence
     Dosage: UNK, 2X/WEEK

REACTIONS (2)
  - Malaise [Unknown]
  - Off label use [Unknown]
